FAERS Safety Report 9805609 (Version 1)
Quarter: 2014Q1

REPORT INFORMATION
  Report Type: Spontaneous
  Country: FR (occurrence: FR)
  Receive Date: 20140109
  Receipt Date: 20140109
  Transmission Date: 20141002
  Serious: Yes (Hospitalization)
  Sender: FDA-Public Use
  Company Number: FR-BAYER-2014-001983

PATIENT
  Age: 65 Year
  Sex: Male

DRUGS (9)
  1. NEXAVAR [Suspect]
     Indication: HEPATOCELLULAR CARCINOMA
     Dosage: 400 MG, BID
     Route: 048
     Dates: start: 20131113, end: 20131118
  2. NEXAVAR [Suspect]
     Indication: HEPATOCELLULAR CARCINOMA
     Dosage: 200 MG, QD
     Route: 048
     Dates: start: 20131130, end: 2013
  3. NEXAVAR [Suspect]
     Indication: HEPATOCELLULAR CARCINOMA
     Dosage: 400 MG, QD
     Route: 048
     Dates: start: 20131203
  4. ALEPSAL [Suspect]
     Indication: EPILEPSY
     Dosage: 100 MG, QD
     Route: 048
     Dates: start: 201010, end: 20131118
  5. ALEPSAL [Suspect]
     Indication: EPILEPSY
     Dosage: 15 MG, QD
     Route: 048
     Dates: start: 20131122
  6. ALDACTONE [SPIRONOLACTONE] [Concomitant]
  7. AVLOCARDYL [Concomitant]
     Dosage: UNK
  8. LYSANXIA [Concomitant]
     Dosage: UNK
  9. DAFALGAN [Concomitant]

REACTIONS (1)
  - Hepatic encephalopathy [Recovering/Resolving]
